FAERS Safety Report 4901766-4 (Version None)
Quarter: 2006Q1

REPORT INFORMATION
  Report Type: 
  Country: None (occurrence: None)
  Receive Date: 20060203
  Receipt Date: 20060203
  Transmission Date: 20060701
  Serious: Yes (Hospitalization)
  Sender: FDA-Public Use
  Company Number: None

PATIENT
  Sex: Male
  Weight: 80.3 kg

DRUGS (2)
  1. INTERFERON A-2B   10MIU/ML    SCHERING [Suspect]
     Indication: MALIGNANT MELANOMA
     Dosage: 5.85MIU   DAILY X 7 DAYS  SQ
     Route: 058
     Dates: start: 20060123, end: 20060129
  2. SODIUM STIBOGLUCONATE   100MG/ML    ALBERT DAVID LTD [Suspect]
     Dosage: 780MG  DAILY X 5 DAYS  IV (THERAPY DATES: TO BEGIN 2/06/2006)
     Route: 042

REACTIONS (1)
  - PAIN [None]
